FAERS Safety Report 8267357-5 (Version None)
Quarter: 2012Q2

REPORT INFORMATION
  Report Type: 
  Country: None (occurrence: None)
  Receive Date: 20120409
  Receipt Date: 20120330
  Transmission Date: 20120825
  Serious: Yes (Other)
  Sender: FDA-Public Use
  Company Number: PHHY2012JP015431

PATIENT
  Sex: Female

DRUGS (12)
  1. ALENDRONATE SODIUM [Concomitant]
     Indication: OSTEOPOROSIS
     Dosage: UNK UKN, UNK
     Route: 048
     Dates: start: 20120116
  2. COTRIM [Concomitant]
     Dosage: UNK
     Route: 048
     Dates: start: 20120130
  3. JUVELA [Concomitant]
     Indication: HYPERLIPIDAEMIA
     Dosage: 600 MG, UNK
     Route: 048
  4. FAMOTIDINE [Concomitant]
     Indication: GASTRIC ULCER
     Dosage: 40 MG, UNK
     Route: 048
     Dates: start: 20120131
  5. POTASSIUM CHLORIDE [Concomitant]
     Indication: HYPERKALAEMIA
     Dosage: 1200 MG, UNK
     Route: 048
  6. NEORAL [Suspect]
     Dosage: 150 MG, UNK
     Route: 048
     Dates: start: 20120217, end: 20120227
  7. NEORAL [Suspect]
     Dosage: 200 MG, UNK
     Route: 048
     Dates: start: 20120228
  8. PREDNISOLONE [Concomitant]
     Dosage: UNK UKN, UNK
  9. CANDESARTAN CILEXETIL [Concomitant]
     Dosage: UNK UKN, UNK
     Route: 048
  10. NEORAL [Suspect]
     Dosage: 200 MG, UNK
     Route: 048
     Dates: start: 20120213, end: 20120216
  11. LIPITOR [Concomitant]
     Indication: HYPERLIPIDAEMIA
     Dosage: 10 MG, UNK
     Route: 048
  12. NEORAL [Suspect]
     Indication: INTERSTITIAL LUNG DISEASE
     Dosage: 150 MG, UNK
     Route: 048
     Dates: start: 20120208

REACTIONS (1)
  - PANCYTOPENIA [None]
